FAERS Safety Report 7764977-9 (Version None)
Quarter: 2011Q3

REPORT INFORMATION
  Report Type: 
  Country: None (occurrence: None)
  Receive Date: 20110921
  Receipt Date: 20110909
  Transmission Date: 20111222
  Serious: Yes (Hospitalization)
  Sender: FDA-Public Use
  Company Number: FR-PFIZER INC-2011201380

PATIENT
  Age: 49 Year
  Sex: Male

DRUGS (21)
  1. SULFASALAZINE [Suspect]
     Indication: BURSITIS
     Dosage: 1000 MG, 2X/DAY
     Route: 048
     Dates: end: 20110601
  2. OLMESARTAN MEDOXOMIL [Suspect]
     Dosage: 20 MG, 1X/DAY
     Route: 048
     Dates: start: 20110625, end: 20110712
  3. LANSOPRAZOLE [Suspect]
     Indication: BURSITIS
     Dosage: 15 MG,
     Route: 048
     Dates: end: 20110621
  4. PANTOPRAZOLE [Suspect]
     Dosage: 40 MG, DAILY
     Route: 042
     Dates: start: 20110623, end: 20110628
  5. BISOPROLOL FUMARATE [Suspect]
     Dosage: UNK MG, UNK
     Route: 048
     Dates: end: 20110621
  6. CETIRIZINE [Concomitant]
     Dosage: UNK
     Route: 048
     Dates: start: 20110702, end: 20110705
  7. LOVENOX [Suspect]
     Dosage: 4000 IU, DAILY
     Route: 058
     Dates: start: 20110624, end: 20110630
  8. ASPIRIN [Suspect]
     Dosage: 75 MG, 1X/DAY
     Route: 048
     Dates: start: 20110625, end: 20110705
  9. ACETAMINOPHEN [Suspect]
     Dosage: 1 G, 4X/DAY
     Route: 048
     Dates: end: 20110621
  10. PHLOROGLUCINOL [Suspect]
     Dosage: 80 MG/4 H
     Route: 048
     Dates: start: 20110627, end: 20110629
  11. VITAMIN B1 AND B6 [Suspect]
     Dosage: UNK
     Dates: start: 20110628, end: 20110712
  12. NEXIUM [Suspect]
     Dosage: 40 MG, 1X/DAY
     Route: 048
     Dates: start: 20110629, end: 20110701
  13. KETOPROFEN [Suspect]
     Dosage: UNK
     Route: 048
     Dates: end: 20110621
  14. BISOPROLOL FUMARATE [Suspect]
     Dosage: 10 MG, 1X/DAY
     Route: 048
     Dates: start: 20110625, end: 20110712
  15. ASPIRIN [Suspect]
     Dosage: 75 MG, 1X/DAY
     Route: 048
     Dates: start: 20110625, end: 20110705
  16. ZOLPIDEM [Suspect]
     Dosage: 10 MG, DAILY
     Dates: start: 20110628, end: 20110701
  17. PANTOPRAZOLE [Suspect]
     Dosage: UNK
     Dates: start: 20110625, end: 20110628
  18. VITABACT [Suspect]
     Dosage: 1 GTT IN EACH EYE, EVERY 4 HRS
     Route: 047
     Dates: start: 20110627, end: 20110710
  19. CEFTRIAXONE [Suspect]
     Dosage: 1 G, DAILY
     Route: 042
     Dates: start: 20110626, end: 20110630
  20. TRAMADOL HCL [Suspect]
     Dosage: 1 AMPULE EVERY 6 HOURS, IF PAINS
     Dates: start: 20110623, end: 20110624
  21. IMOVANE [Concomitant]
     Dosage: 7.5 MG, DAILY
     Route: 048
     Dates: start: 20110702, end: 20110705

REACTIONS (5)
  - TOXICITY TO VARIOUS AGENTS [None]
  - FEBRILE NEUTROPENIA [None]
  - DERMATITIS EXFOLIATIVE [None]
  - DRUG RASH WITH EOSINOPHILIA AND SYSTEMIC SYMPTOMS [None]
  - LIVER INJURY [None]
